FAERS Safety Report 11912866 (Version 1)
Quarter: 2016Q1

REPORT INFORMATION
  Report Type: Spontaneous
  Country: US (occurrence: None)
  Receive Date: 20160112
  Receipt Date: 20160112
  Transmission Date: 20160526
  Serious: Yes (Disabling)
  Sender: FDA-Public Use
  Company Number: None

PATIENT
  Age: 57 Year
  Sex: Female
  Weight: 64.41 kg

DRUGS (1)
  1. LEVOFLOXACIN 500MG [Suspect]
     Active Substance: LEVOFLOXACIN
     Indication: PNEUMONIA
     Dosage: 1 PILL DAILY
     Route: 048
     Dates: start: 20151229, end: 20160105

REACTIONS (3)
  - Arthralgia [None]
  - Impaired work ability [None]
  - Pain in extremity [None]

NARRATIVE: CASE EVENT DATE: 20160105
